FAERS Safety Report 7419920-9 (Version None)
Quarter: 2011Q2

REPORT INFORMATION
  Report Type: 
  Country: None (occurrence: None)
  Receive Date: 20110418
  Receipt Date: 20110411
  Transmission Date: 20111010
  Serious: Yes (Hospitalization)
  Sender: FDA-Public Use
  Company Number: US-BIOGENIDEC-2010BI028176

PATIENT
  Age: 62 Year
  Sex: Female

DRUGS (2)
  1. TYSABRI [Suspect]
     Route: 042
     Dates: start: 20100712
  2. TYSABRI [Suspect]
     Indication: MULTIPLE SCLEROSIS
     Route: 042
     Dates: start: 20070423, end: 20090925

REACTIONS (10)
  - TENDON DISORDER [None]
  - MIGRAINE [None]
  - COGNITIVE DISORDER [None]
  - BUNION OPERATION [None]
  - FEELING ABNORMAL [None]
  - MEMORY IMPAIRMENT [None]
  - FATIGUE [None]
  - MUSCULOSKELETAL DISORDER [None]
  - DEPRESSION [None]
  - ASTHENIA [None]
